FAERS Safety Report 8271190-8 (Version None)
Quarter: 2012Q2

REPORT INFORMATION
  Report Type: 
  Country: None (occurrence: None)
  Receive Date: 20120410
  Receipt Date: 20120403
  Transmission Date: 20120825
  Serious: Yes (Other)
  Sender: FDA-Public Use
  Company Number: US-ROCHE-1045550

PATIENT
  Sex: Male

DRUGS (1)
  1. ZELBORAF [Suspect]
     Indication: PRODUCT USED FOR UNKNOWN INDICATION

REACTIONS (7)
  - DECREASED APPETITE [None]
  - MASS [None]
  - VISUAL IMPAIRMENT [None]
  - HAEMATEMESIS [None]
  - ARTHRALGIA [None]
  - FATIGUE [None]
  - ALOPECIA [None]
